FAERS Safety Report 13966606 (Version 3)
Quarter: 2020Q1

REPORT INFORMATION
  Report Type: Spontaneous
  Country: US (occurrence: US)
  Receive Date: 20170914
  Receipt Date: 20200206
  Transmission Date: 20200409
  Serious: Yes (Life-Threatening, Hospitalization, Other)
  Sender: FDA-Public Use
  Company Number: US-AUROBINDO-AUR-APL-2017-40200

PATIENT
  Age: 74 Year
  Sex: Female

DRUGS (2)
  1. BUPIVACAINE HYDROCHLORIDE. [Suspect]
     Active Substance: BUPIVACAINE HYDROCHLORIDE
     Indication: PAIN
     Dosage: 100 MILLIGRAM (10MG/ML)
     Route: 037
  2. KADIAN [Suspect]
     Active Substance: MORPHINE SULFATE
     Indication: PAIN
     Dosage: 350 MILLIGRAM (35MG/ML)
     Route: 037

REACTIONS (5)
  - Peripheral sensorimotor neuropathy [Recovering/Resolving]
  - Device malfunction [Unknown]
  - Neurogenic shock [Unknown]
  - Status epilepticus [Recovered/Resolved]
  - Toxicity to various agents [Unknown]
